FAERS Safety Report 6129005-X (Version None)
Quarter: 2009Q1

REPORT INFORMATION
  Report Type: 
  Country: None (occurrence: None)
  Receive Date: 20090324
  Receipt Date: 20090317
  Transmission Date: 20090719
  Serious: No
  Sender: FDA-Public Use
  Company Number: PHEH2009US00704

PATIENT
  Sex: Female
  Weight: 62.585 kg

DRUGS (5)
  1. RECLAST [Suspect]
     Indication: OSTEOPOROSIS POSTMENOPAUSAL
     Dosage: 5 MG, ONCE/SINGLE
     Dates: start: 20081223, end: 20081223
  2. CALCIUM CITRATE [Concomitant]
     Indication: MEDICAL DIET
     Dosage: 1200 MG, UNK
  3. VITAMIN D3 [Concomitant]
     Indication: MEDICAL DIET
     Dosage: 1000 I.U., UNK
  4. VITAMIN B6 [Concomitant]
     Indication: MEDICAL DIET
     Dosage: UNK, UNK
  5. CENTRUM [Concomitant]
     Indication: MEDICAL DIET
     Dosage: ONE TABLET, UNK

REACTIONS (3)
  - BLOOD CALCIUM DECREASED [None]
  - ORAL DYSAESTHESIA [None]
  - PARAESTHESIA [None]
